FAERS Safety Report 6199367-6 (Version None)
Quarter: 2009Q2

REPORT INFORMATION
  Report Type: 
  Country: None (occurrence: None)
  Receive Date: 20090520
  Receipt Date: 20090520
  Transmission Date: 20091009
  Serious: Yes (Hospitalization)
  Sender: FDA-Public Use
  Company Number: None

PATIENT
  Age: 92 Year
  Sex: Male
  Weight: 70.6 kg

DRUGS (9)
  1. BACTRIM DS [Suspect]
     Indication: CELLULITIS
     Dosage: 1 TABLET BID PO
     Route: 048
     Dates: start: 20090511, end: 20090517
  2. LANOXIN [Concomitant]
  3. TOPROL-XL [Concomitant]
  4. ALDACTONE [Concomitant]
  5. FLOMAX [Concomitant]
  6. DEMADEX [Concomitant]
  7. COZAAR [Concomitant]
  8. AVODART [Concomitant]
  9. WARFARIN [Concomitant]

REACTIONS (3)
  - DRUG INTERACTION [None]
  - INTERNATIONAL NORMALISED RATIO INCREASED [None]
  - RENAL FAILURE ACUTE [None]
